FAERS Safety Report 6282885-X (Version None)
Quarter: 2009Q3

REPORT INFORMATION
  Report Type: 
  Country: None (occurrence: None)
  Receive Date: 20090722
  Receipt Date: 20090716
  Transmission Date: 20100115
  Serious: Yes (Death, Other)
  Sender: FDA-Public Use
  Company Number: 2009US002786

PATIENT
  Age: 14 Month
  Sex: Female

DRUGS (2)
  1. PROGRAF [Suspect]
     Indication: LIVER AND SMALL INTESTINE TRANSPLANT
  2. CORTICOSTEROID NOS (CORTICOSTEROID NOS) [Suspect]
     Indication: LIVER AND SMALL INTESTINE TRANSPLANT

REACTIONS (21)
  - ANAEMIA [None]
  - BONE MARROW FAILURE [None]
  - EPSTEIN-BARR VIRUS ASSOCIATED LYMPHOPROLIFERATIVE DISORDER [None]
  - GASTROINTESTINAL HAEMORRHAGE [None]
  - GENERAL PHYSICAL HEALTH DETERIORATION [None]
  - GRAFT VERSUS HOST DISEASE [None]
  - HEPATIC FAILURE [None]
  - HYPOXIA [None]
  - INFECTION [None]
  - LYMPHADENOPATHY [None]
  - MENINGEAL DISORDER [None]
  - METABOLIC ACIDOSIS [None]
  - MULTI-ORGAN FAILURE [None]
  - NO THERAPEUTIC RESPONSE [None]
  - PLASMABLAST COUNT INCREASED [None]
  - PLASMABLASTIC LYMPHOMA [None]
  - RASH ERYTHEMATOUS [None]
  - RENAL FAILURE [None]
  - RESPIRATORY ACIDOSIS [None]
  - RESPIRATORY FAILURE [None]
  - THROMBOCYTOPENIA [None]
